FAERS Safety Report 9541356 (Version 1)
Quarter: 2013Q3

REPORT INFORMATION
  Report Type: Report from Study
  Country: GB (occurrence: GB)
  Receive Date: 20130923
  Receipt Date: 20130923
  Transmission Date: 20140515
  Serious: Yes (Hospitalization)
  Sender: FDA-Public Use
  Company Number: GB-PFIZER INC-2013269328

PATIENT
  Age: 65 Year
  Sex: Male

DRUGS (1)
  1. IBUPROFEN [Suspect]
     Indication: OSTEOARTHRITIS
     Dosage: 400 MG, 3X/DAY
     Route: 048

REACTIONS (1)
  - Acute myocardial infarction [Recovered/Resolved with Sequelae]
